FAERS Safety Report 14794118 (Version 1)
Quarter: 2018Q2

REPORT INFORMATION
  Report Type: Spontaneous
  Country: BR (occurrence: BR)
  Receive Date: 20180423
  Receipt Date: 20180423
  Transmission Date: 20180711
  Serious: Yes (Other)
  Sender: FDA-Public Use
  Company Number: BR-SA-2018SA113605

PATIENT
  Age: 62 Year
  Sex: Male
  Weight: 128 kg

DRUGS (6)
  1. GLIFAGE [Concomitant]
     Active Substance: METFORMIN HYDROCHLORIDE
     Indication: DIABETES MELLITUS
     Route: 048
     Dates: start: 20171106
  2. SOLOSTAR [Suspect]
     Active Substance: DEVICE
     Indication: DIABETES MELLITUS
     Dates: start: 20170824
  3. CLOPIDOGREL BISULFATE. [Concomitant]
     Active Substance: CLOPIDOGREL BISULFATE
     Route: 048
     Dates: start: 201709
  4. SINVASTACOR [Concomitant]
     Active Substance: SIMVASTATIN
     Route: 048
     Dates: start: 201709
  5. SOMALGIN CARDIO [Concomitant]
     Active Substance: ASPIRIN\DIHYDROXYALUMINUM AMINOACETATE ANHYDROUS\MAGNESIUM CARBONATE
     Indication: BLOOD DISORDER
     Route: 048
     Dates: start: 201709
  6. LANTUS SOLOSTAR [Suspect]
     Active Substance: INSULIN GLARGINE
     Indication: DIABETES MELLITUS
     Dosage: DOSE: 40 IU IN MORNING, 36 IU AT NIGHT
     Route: 058
     Dates: start: 20170824

REACTIONS (2)
  - Infarction [Unknown]
  - Product use issue [Unknown]

NARRATIVE: CASE EVENT DATE: 20170824
